FAERS Safety Report 14830155 (Version 2)
Quarter: 2018Q2

REPORT INFORMATION
  Report Type: Spontaneous
  Country: CA (occurrence: CA)
  Receive Date: 20180430
  Receipt Date: 20180525
  Transmission Date: 20180711
  Serious: Yes (Other)
  Sender: FDA-Public Use
  Company Number: CA-PFIZER INC-2018139122

PATIENT
  Age: 30 Year
  Sex: Male

DRUGS (3)
  1. HUMIRA [Suspect]
     Active Substance: ADALIMUMAB
     Dosage: UNK
     Dates: start: 201703, end: 201803
  2. HUMIRA [Suspect]
     Active Substance: ADALIMUMAB
     Dosage: UNK UNK, WEEKLY
     Dates: start: 201704
  3. SULFASALAZINE. [Suspect]
     Active Substance: SULFASALAZINE
     Indication: ANKYLOSING SPONDYLITIS
     Dosage: 1000 MG, 2X/DAY
     Route: 048

REACTIONS (4)
  - Ankylosing spondylitis [Unknown]
  - Eye inflammation [Unknown]
  - Product use in unapproved indication [Unknown]
  - Condition aggravated [Unknown]
